FAERS Safety Report 8584039-0 (Version None)
Quarter: 2012Q3

REPORT INFORMATION
  Report Type: 
  Country: None (occurrence: None)
  Receive Date: 20120810
  Receipt Date: 20120725
  Transmission Date: 20120928
  Serious: No
  Sender: FDA-Public Use
  Company Number: US-009507513-1208USA000550

PATIENT

DRUGS (4)
  1. RIBAVIRIN (+) INTERFERON ALFA-2B [Suspect]
     Route: 048
  2. PEG-INTRON [Suspect]
  3. FOLIC ACID [Concomitant]
     Indication: PREGNANCY
     Dosage: UNK
     Dates: start: 20101201, end: 20110201
  4. VITAMINS (UNSPECIFIED) [Concomitant]
     Indication: PREGNANCY
     Dosage: UNK
     Dates: start: 20101201

REACTIONS (1)
  - MATERNAL EXPOSURE BEFORE PREGNANCY [None]
